FAERS Safety Report 9200922 (Version 7)
Quarter: 2015Q3

REPORT INFORMATION
  Report Type: Spontaneous
  Country: BR (occurrence: BR)
  Receive Date: 20130401
  Receipt Date: 20150831
  Transmission Date: 20151125
  Serious: Yes (Other)
  Sender: FDA-Public Use
  Company Number: BR-JNJFOC-20121213570

PATIENT
  Age: 59 Year
  Sex: Female
  Weight: 83 kg

DRUGS (61)
  1. HALDOL [Suspect]
     Active Substance: HALOPERIDOL
     Indication: AGITATION
     Route: 048
     Dates: start: 2015
  2. HALDOL [Suspect]
     Active Substance: HALOPERIDOL
     Indication: AGITATION
     Route: 048
     Dates: end: 20130522
  3. HALDOL [Suspect]
     Active Substance: HALOPERIDOL
     Indication: DEPRESSION
     Route: 048
     Dates: start: 2011
  4. HALDOL [Suspect]
     Active Substance: HALOPERIDOL
     Indication: DEPRESSION
     Route: 048
  5. HALDOL [Suspect]
     Active Substance: HALOPERIDOL
     Indication: NERVOUSNESS
     Route: 048
     Dates: start: 2015
  6. HALDOL [Suspect]
     Active Substance: HALOPERIDOL
     Indication: AGGRESSION
     Route: 048
     Dates: start: 2005, end: 20131023
  7. HALDOL [Suspect]
     Active Substance: HALOPERIDOL
     Indication: AGGRESSION
     Dosage: 1 TABLET/DAY IN THE MORNING
     Route: 048
     Dates: start: 201311
  8. RIVOTRIL [Concomitant]
     Active Substance: CLONAZEPAM
     Indication: DEPRESSION
     Route: 065
     Dates: start: 2006
  9. HALDOL [Suspect]
     Active Substance: HALOPERIDOL
     Indication: ANXIETY
     Route: 048
     Dates: start: 2015
  10. HALDOL [Suspect]
     Active Substance: HALOPERIDOL
     Indication: DEPRESSION
     Dosage: 1 TABLET/DAY IN THE MORNING
     Route: 048
     Dates: start: 201311
  11. HALDOL [Suspect]
     Active Substance: HALOPERIDOL
     Indication: AGGRESSION
     Route: 048
     Dates: start: 20131031, end: 20131125
  12. SERTRALINE [Concomitant]
     Active Substance: SERTRALINE HYDROCHLORIDE
     Indication: DEPRESSION
     Route: 065
     Dates: start: 20131013, end: 20131030
  13. HALDOL [Suspect]
     Active Substance: HALOPERIDOL
     Indication: DEPRESSION
     Route: 048
     Dates: start: 2009, end: 201211
  14. HALDOL [Suspect]
     Active Substance: HALOPERIDOL
     Indication: NERVOUSNESS
     Route: 048
     Dates: start: 2009, end: 201211
  15. HALDOL [Suspect]
     Active Substance: HALOPERIDOL
     Indication: AGGRESSION
     Route: 048
     Dates: start: 2009, end: 201211
  16. HALDOL [Suspect]
     Active Substance: HALOPERIDOL
     Indication: NEGATIVE THOUGHTS
     Route: 048
     Dates: start: 20131031, end: 20131125
  17. HALDOL [Suspect]
     Active Substance: HALOPERIDOL
     Indication: NEGATIVE THOUGHTS
     Dosage: 1 TABLET/DAY IN THE MORNING
     Route: 048
     Dates: start: 201311
  18. HALDOL [Suspect]
     Active Substance: HALOPERIDOL
     Indication: NEGATIVE THOUGHTS
     Route: 048
     Dates: start: 2015
  19. RIVOTRIL [Concomitant]
     Active Substance: CLONAZEPAM
     Indication: AGITATION
     Route: 065
     Dates: start: 2006
  20. RIVOTRIL [Concomitant]
     Active Substance: CLONAZEPAM
     Indication: SLEEP DISORDER THERAPY
     Route: 065
     Dates: start: 2006
  21. HALDOL [Suspect]
     Active Substance: HALOPERIDOL
     Indication: AGITATION
     Route: 048
     Dates: start: 20131031, end: 20131125
  22. HALDOL [Suspect]
     Active Substance: HALOPERIDOL
     Indication: AGITATION
     Route: 048
     Dates: start: 2005, end: 20131023
  23. HALDOL [Suspect]
     Active Substance: HALOPERIDOL
     Indication: DEPRESSION
     Route: 048
     Dates: start: 20131031, end: 20131125
  24. HALDOL [Suspect]
     Active Substance: HALOPERIDOL
     Indication: NERVOUSNESS
     Route: 048
     Dates: start: 2011
  25. HALDOL [Suspect]
     Active Substance: HALOPERIDOL
     Indication: NERVOUSNESS
     Route: 048
     Dates: start: 2005, end: 20131023
  26. HALDOL [Suspect]
     Active Substance: HALOPERIDOL
     Indication: NERVOUSNESS
     Route: 048
  27. HALDOL [Suspect]
     Active Substance: HALOPERIDOL
     Indication: AGGRESSION
     Route: 048
     Dates: start: 2015
  28. HALDOL [Suspect]
     Active Substance: HALOPERIDOL
     Indication: AGGRESSION
     Route: 048
     Dates: start: 2011
  29. AMITRIPTYLINE [Concomitant]
     Active Substance: AMITRIPTYLINE
     Indication: DEPRESSION
     Route: 065
     Dates: start: 2008
  30. ATENOLOL. [Concomitant]
     Active Substance: ATENOLOL
     Indication: ARRHYTHMIA
     Route: 065
     Dates: start: 2013
  31. HALDOL [Suspect]
     Active Substance: HALOPERIDOL
     Indication: ANXIETY
     Route: 048
     Dates: start: 2011
  32. HALDOL [Suspect]
     Active Substance: HALOPERIDOL
     Indication: ANXIETY
     Route: 048
     Dates: start: 2005, end: 20131023
  33. SERTRALINE [Concomitant]
     Active Substance: SERTRALINE HYDROCHLORIDE
     Indication: AGITATION
     Route: 065
     Dates: start: 20131013, end: 20131030
  34. AMITRIPTYLINE [Concomitant]
     Active Substance: AMITRIPTYLINE
     Indication: DEPRESSION
     Route: 065
  35. ATENOLOL. [Concomitant]
     Active Substance: ATENOLOL
     Indication: HYPERTENSION
     Route: 065
     Dates: start: 2013
  36. HALDOL [Suspect]
     Active Substance: HALOPERIDOL
     Indication: ANXIETY
     Route: 048
     Dates: start: 20131031, end: 20131125
  37. HALDOL [Suspect]
     Active Substance: HALOPERIDOL
     Indication: ANXIETY
     Route: 048
  38. HALDOL [Suspect]
     Active Substance: HALOPERIDOL
     Indication: AGITATION
     Route: 048
     Dates: start: 2011
  39. HALDOL [Suspect]
     Active Substance: HALOPERIDOL
     Indication: NERVOUSNESS
     Dosage: 1 TABLET/DAY IN THE MORNING
     Route: 048
     Dates: start: 201311
  40. HALDOL [Suspect]
     Active Substance: HALOPERIDOL
     Indication: AGGRESSION
     Route: 048
  41. HALDOL [Suspect]
     Active Substance: HALOPERIDOL
     Indication: NEGATIVE THOUGHTS
     Route: 048
  42. HALDOL [Suspect]
     Active Substance: HALOPERIDOL
     Indication: NEGATIVE THOUGHTS
     Route: 048
     Dates: start: 2009, end: 201211
  43. SERTRALINE [Concomitant]
     Active Substance: SERTRALINE HYDROCHLORIDE
     Indication: AGITATION
     Route: 065
     Dates: start: 201309
  44. HALDOL [Suspect]
     Active Substance: HALOPERIDOL
     Indication: AGITATION
     Route: 048
  45. HALDOL [Suspect]
     Active Substance: HALOPERIDOL
     Indication: DEPRESSION
     Route: 048
     Dates: start: 2015
  46. HALDOL [Suspect]
     Active Substance: HALOPERIDOL
     Indication: DEPRESSION
     Route: 048
     Dates: start: 2005, end: 20131023
  47. HALDOL [Suspect]
     Active Substance: HALOPERIDOL
     Indication: DEPRESSION
     Route: 048
     Dates: end: 20130522
  48. HALDOL [Suspect]
     Active Substance: HALOPERIDOL
     Indication: NEGATIVE THOUGHTS
     Route: 048
     Dates: start: 2011
  49. HALDOL [Suspect]
     Active Substance: HALOPERIDOL
     Indication: NEGATIVE THOUGHTS
     Route: 048
     Dates: start: 2005, end: 20131023
  50. HALDOL [Suspect]
     Active Substance: HALOPERIDOL
     Indication: ANXIETY
     Route: 048
     Dates: end: 20130522
  51. HALDOL [Suspect]
     Active Substance: HALOPERIDOL
     Indication: ANXIETY
     Route: 048
     Dates: start: 2009, end: 201211
  52. HALDOL [Suspect]
     Active Substance: HALOPERIDOL
     Indication: ANXIETY
     Dosage: 1 TABLET/DAY IN THE MORNING
     Route: 048
     Dates: start: 201311
  53. HALDOL [Suspect]
     Active Substance: HALOPERIDOL
     Indication: AGITATION
     Dosage: 1 TABLET/DAY IN THE MORNING
     Route: 048
     Dates: start: 201311
  54. HALDOL [Suspect]
     Active Substance: HALOPERIDOL
     Indication: AGITATION
     Route: 048
     Dates: start: 2009, end: 201211
  55. HALDOL [Suspect]
     Active Substance: HALOPERIDOL
     Indication: NERVOUSNESS
     Route: 048
     Dates: end: 20130522
  56. HALDOL [Suspect]
     Active Substance: HALOPERIDOL
     Indication: NERVOUSNESS
     Route: 048
     Dates: start: 20131031, end: 20131125
  57. HALDOL [Suspect]
     Active Substance: HALOPERIDOL
     Indication: AGGRESSION
     Route: 048
     Dates: end: 20130522
  58. HALDOL [Suspect]
     Active Substance: HALOPERIDOL
     Indication: NEGATIVE THOUGHTS
     Route: 048
     Dates: end: 20130522
  59. SERTRALINE [Concomitant]
     Active Substance: SERTRALINE HYDROCHLORIDE
     Indication: DEPRESSION
     Route: 065
     Dates: start: 201309
  60. RIVOTRIL [Concomitant]
     Active Substance: CLONAZEPAM
     Indication: RELAXATION THERAPY
     Route: 065
     Dates: start: 2006
  61. ENALAPRIL [Concomitant]
     Active Substance: ENALAPRIL
     Indication: HYPERTENSION
     Route: 065
     Dates: start: 2013

REACTIONS (31)
  - Agitation [Not Recovered/Not Resolved]
  - Muscle spasms [Unknown]
  - Pain [Not Recovered/Not Resolved]
  - Self-medication [Unknown]
  - Emotional distress [Not Recovered/Not Resolved]
  - Insomnia [Unknown]
  - Aggression [Not Recovered/Not Resolved]
  - Musculoskeletal stiffness [Not Recovered/Not Resolved]
  - Negative thoughts [Not Recovered/Not Resolved]
  - Intentional self-injury [Unknown]
  - Anxiety [Not Recovered/Not Resolved]
  - Palpitations [Not Recovered/Not Resolved]
  - Myalgia [Not Recovered/Not Resolved]
  - Malaise [Not Recovered/Not Resolved]
  - Headache [Not Recovered/Not Resolved]
  - Chest pain [Not Recovered/Not Resolved]
  - Restlessness [Not Recovered/Not Resolved]
  - Off label use [Unknown]
  - Heart rate increased [Unknown]
  - Dysgeusia [Not Recovered/Not Resolved]
  - Drug ineffective [Not Recovered/Not Resolved]
  - Feeling abnormal [Not Recovered/Not Resolved]
  - Nausea [Unknown]
  - Hyperglycaemia [Unknown]
  - Phobia [Unknown]
  - Depression [Not Recovered/Not Resolved]
  - Chest discomfort [Unknown]
  - Treatment noncompliance [Unknown]
  - Fatigue [Unknown]
  - Aphthous ulcer [Not Recovered/Not Resolved]
  - Weight increased [Not Recovered/Not Resolved]

NARRATIVE: CASE EVENT DATE: 2005
